FAERS Safety Report 7424203-7 (Version None)
Quarter: 2011Q2

REPORT INFORMATION
  Report Type: 
  Country: None (occurrence: None)
  Receive Date: 20110419
  Receipt Date: 20110408
  Transmission Date: 20111010
  Serious: No
  Sender: FDA-Public Use
  Company Number: US-ROXANE LABORATORIES, INC.-2011-RO-00491RO

PATIENT
  Sex: Male

DRUGS (5)
  1. FLOMAX [Concomitant]
  2. ZOLPIDEM [Suspect]
     Indication: SLEEP DISORDER
     Dosage: 10 MG
     Route: 048
  3. TESTOSTERONE [Concomitant]
  4. OMEPRAZOLE [Concomitant]
  5. PRAVASTATIN [Concomitant]
     Dosage: 40 MG

REACTIONS (1)
  - DRUG INEFFECTIVE [None]
